FAERS Safety Report 14165751 (Version 6)
Quarter: 2017Q4

REPORT INFORMATION
  Report Type: Report from Study
  Country: NL (occurrence: NL)
  Receive Date: 20171107
  Receipt Date: 20171124
  Transmission Date: 20180321
  Serious: Yes (Hospitalization)
  Sender: FDA-Public Use
  Company Number: NL-ROCHE-2019057

PATIENT
  Age: 72 Year
  Sex: Female
  Weight: 63.5 kg

DRUGS (4)
  1. INSULINE [Concomitant]
     Active Substance: INSULIN NOS
     Route: 065
  2. ATEZOLIZUMAB. [Suspect]
     Active Substance: ATEZOLIZUMAB
     Indication: MALIGNANT URINARY TRACT NEOPLASM
     Dosage: DATE OF MOST RECENT DOSE OF ATEZOLIZUMAB PRIOR TO SAE ONSET ON 12/OCT/2017, 1200MG
     Route: 042
     Dates: start: 20170921
  3. METFORMIN [Concomitant]
     Active Substance: METFORMIN HYDROCHLORIDE
     Route: 048
  4. BISOPROLOL FUMARAT [Concomitant]
     Route: 048

REACTIONS (1)
  - Aphasia [Recovered/Resolved]

NARRATIVE: CASE EVENT DATE: 20171028
